FAERS Safety Report 8377298-0 (Version None)
Quarter: 2012Q1

REPORT INFORMATION
  Report Type: 
  Country: None (occurrence: None)
  Receive Date: 20120323
  Receipt Date: 20110802
  Transmission Date: 20120608
  Serious: Yes (Other)
  Sender: FDA-Public Use
  Company Number: 163-21880-11033047

PATIENT
  Age: 82 Year
  Sex: Female

DRUGS (3)
  1. REVLIMID [Suspect]
  2. REVLIMID [Suspect]
     Indication: MULTIPLE MYELOMA
     Dosage: 10 MG, DAYS 1-21 EVERY 28 DAYS, PO 5 MG, 1 IN 1 D, PO
     Route: 048
     Dates: start: 20110128
  3. REVLIMID [Suspect]
     Indication: MULTIPLE MYELOMA
     Dosage: 10 MG, DAYS 1-21 EVERY 28 DAYS, PO 5 MG, 1 IN 1 D, PO
     Route: 048
     Dates: start: 20110401

REACTIONS (5)
  - RASH PRURITIC [None]
  - FATIGUE [None]
  - NEUROPATHY PERIPHERAL [None]
  - FULL BLOOD COUNT DECREASED [None]
  - MUSCULAR WEAKNESS [None]
